FAERS Safety Report 10038055 (Version 1)
Quarter: 2014Q1

REPORT INFORMATION
  Report Type: Spontaneous
  Country: IT (occurrence: IT)
  Receive Date: 20140326
  Receipt Date: 20140326
  Transmission Date: 20141002
  Serious: Yes (Other)
  Sender: FDA-Public Use
  Company Number: IT-TEVA-470705ISR

PATIENT
  Age: 22 Year
  Sex: Male

DRUGS (2)
  1. TOPIRAMATE [Suspect]
     Dosage: 300 MILLIGRAM DAILY;
     Route: 065
  2. OLANZAPINE [Interacting]
     Dosage: 15 MILLIGRAM DAILY;
     Route: 065

REACTIONS (2)
  - Priapism [Recovered/Resolved with Sequelae]
  - Drug interaction [Recovered/Resolved with Sequelae]
